FAERS Safety Report 20314807 (Version 1)
Quarter: 2022Q1

REPORT INFORMATION
  Report Type: Other
  Country: US (occurrence: None)
  Receive Date: 20220110
  Receipt Date: 20220110
  Transmission Date: 20220423
  Serious: No
  Sender: FDA-Public Use
  Company Number: US-ROCHE-2906438

PATIENT
  Age: 31 Year
  Sex: Female

DRUGS (16)
  1. RITUXIMAB [Suspect]
     Active Substance: RITUXIMAB
     Indication: Immunosuppression
     Route: 065
  2. DARATUMUMAB [Suspect]
     Active Substance: DARATUMUMAB
     Indication: Immunosuppression
     Route: 042
  3. AZITHROMYCIN [Concomitant]
     Active Substance: AZITHROMYCIN
  4. ETHAMBUTOL [Concomitant]
     Active Substance: ETHAMBUTOL HYDROCHLORIDE
  5. TEDIZOLID [Concomitant]
     Active Substance: TEDIZOLID
  6. MOXIFLOXACIN [Concomitant]
     Active Substance: MOXIFLOXACIN
  7. CLOFAZIMINE [Concomitant]
     Active Substance: CLOFAZIMINE
  8. BEDAQUILINE [Concomitant]
     Active Substance: BEDAQUILINE
  9. MEROPENEM [Concomitant]
     Active Substance: MEROPENEM
  10. BORTEZOMIB [Concomitant]
     Active Substance: BORTEZOMIB
     Route: 058
  11. ACETAMINOPHEN [Concomitant]
     Active Substance: ACETAMINOPHEN
  12. DIPHENHYDRAMINE [Concomitant]
     Active Substance: DIPHENHYDRAMINE
  13. METHYLPREDNISOLONE [Concomitant]
     Active Substance: METHYLPREDNISOLONE
     Dosage: 3 HOURS BEFORE INFUSION
     Route: 042
  14. METHYLPREDNISOLONE [Concomitant]
     Active Substance: METHYLPREDNISOLONE
     Dosage: 1 DAY PRIOR TO INFUSION
     Route: 042
  15. MONTELUKAST [Concomitant]
     Active Substance: MONTELUKAST SODIUM
  16. DEXAMETHASONE [Concomitant]
     Active Substance: DEXAMETHASONE

REACTIONS (2)
  - Hypogammaglobulinaemia [Unknown]
  - B-lymphocyte count decreased [Unknown]
